FAERS Safety Report 7105024-1 (Version None)
Quarter: 2010Q4

REPORT INFORMATION
  Report Type: 
  Country: None (occurrence: None)
  Receive Date: 20101110
  Receipt Date: 20101110
  Transmission Date: 20110411
  Serious: Yes (Disabling)
  Sender: FDA-Public Use
  Company Number: 1022556-2010-00076

PATIENT
  Age: 49 Year
  Sex: Female
  Weight: 59.8748 kg

DRUGS (1)
  1. CORTIZONE 10 CREME 0.5 OZ [Suspect]
     Dosage: TOPICAL/ONCE
     Route: 061

REACTIONS (7)
  - BLISTER [None]
  - EYE SWELLING [None]
  - OEDEMA PERIPHERAL [None]
  - RASH [None]
  - SCAR [None]
  - SELF-MEDICATION [None]
  - THERMAL BURN [None]
